FAERS Safety Report 6329164-X (Version None)
Quarter: 2009Q3

REPORT INFORMATION
  Report Type: 
  Country: None (occurrence: None)
  Receive Date: 20090826
  Receipt Date: 20090428
  Transmission Date: 20100115
  Serious: No
  Sender: FDA-Public Use
  Company Number: US-ASTRAZENECA-2009UW05755

PATIENT
  Age: 73 Year
  Sex: Male
  Weight: 73.9 kg

DRUGS (1)
  1. IRESSA [Suspect]
     Route: 048
     Dates: start: 20010101

REACTIONS (2)
  - FUNGAL SKIN INFECTION [None]
  - SKIN CANDIDA [None]
